FAERS Safety Report 7165700-1 (Version None)
Quarter: 2010Q4

REPORT INFORMATION
  Report Type: 
  Country: None (occurrence: None)
  Receive Date: 20101215
  Receipt Date: 20100104
  Transmission Date: 20110411
  Serious: No
  Sender: FDA-Public Use
  Company Number: US-AMGEN-KDL383487

PATIENT

DRUGS (9)
  1. ENBREL [Suspect]
     Indication: PRODUCT USED FOR UNKNOWN INDICATION
     Dosage: 50 MG, QWK
     Route: 058
  2. XALATAN [Concomitant]
     Dosage: .005 %, UNK
  3. PREDNISONE [Concomitant]
     Dosage: 5 MG, UNK
  4. ADALIMUMAB [Concomitant]
     Dosage: 40 MG, UNK
  5. ZINC [Concomitant]
     Dosage: 50 MG, UNK
  6. FISH OIL [Concomitant]
     Dosage: 500 MG, UNK
  7. MAGNESIUM [Concomitant]
     Dosage: 550 MG, UNK
  8. FOLIC ACID [Concomitant]
     Dosage: 5 MG, UNK
  9. COLECALCIFEROL [Concomitant]
     Dosage: UNK UNK, UNK

REACTIONS (2)
  - INJECTION SITE ERYTHEMA [None]
  - INJECTION SITE PRURITUS [None]
